FAERS Safety Report 20177246 (Version 1)
Quarter: 2021Q4

REPORT INFORMATION
  Report Type: Spontaneous
  Country: US (occurrence: None)
  Receive Date: 20211211
  Receipt Date: 20211211
  Transmission Date: 20220304
  Serious: Yes (Other)
  Sender: FDA-Public Use
  Company Number: None

PATIENT

DRUGS (1)
  1. ENOXAPARIN SODIUM [Suspect]
     Active Substance: ENOXAPARIN SODIUM
     Route: 058

REACTIONS (4)
  - Abortion spontaneous [None]
  - Maternal exposure timing unspecified [None]
  - Maternal drugs affecting foetus [None]
  - Therapeutic product effect decreased [None]

NARRATIVE: CASE EVENT DATE: 20211210
